FAERS Safety Report 9705858 (Version 2)
Quarter: 2013Q4

REPORT INFORMATION
  Report Type: Spontaneous
  Country: JP (occurrence: JP)
  Receive Date: 20131122
  Receipt Date: 20131212
  Transmission Date: 20140711
  Serious: Yes (Life-Threatening, Hospitalization)
  Sender: FDA-Public Use
  Company Number: JP-ABBVIE-13P-087-1172499-00

PATIENT
  Age: 45 Year
  Sex: Male
  Weight: 97 kg

DRUGS (8)
  1. SEVOFRANE [Suspect]
     Indication: INDUCTION AND MAINTENANCE OF ANAESTHESIA
     Dosage: 2.0 - 2.5%
     Route: 055
     Dates: start: 20120613, end: 20120613
  2. PROPOFOL MARUISHI [Suspect]
     Indication: INDUCTION OF ANAESTHESIA
     Route: 042
     Dates: start: 20130613, end: 20130613
  3. ESLAX [Concomitant]
     Indication: HYPOTONIA
     Route: 042
     Dates: start: 20130613, end: 20130613
  4. FENTANYL [Concomitant]
     Indication: ANALGESIC THERAPY
     Route: 042
     Dates: start: 20130613, end: 20130613
  5. NICARDIPINE HYDROCHLORIDE [Concomitant]
     Indication: BLOOD PRESSURE MANAGEMENT
     Route: 042
     Dates: start: 20130613, end: 20130613
  6. ROPION [Concomitant]
     Indication: ANALGESIC THERAPY
     Route: 042
     Dates: start: 20130613, end: 20130613
  7. CEFOTIAM HYDROCHLORIDE [Concomitant]
     Indication: INFECTION PROPHYLAXIS
     Dates: start: 20130613
  8. BRIDION [Concomitant]
     Indication: MUSCLE RELAXANT THERAPY
     Route: 042
     Dates: start: 20130613, end: 20130613

REACTIONS (3)
  - Pulmonary embolism [Recovering/Resolving]
  - Blood pressure increased [Recovered/Resolved]
  - Sinus tachycardia [Recovering/Resolving]
